FAERS Safety Report 20667655 (Version 1)
Quarter: 2022Q2

REPORT INFORMATION
  Report Type: Spontaneous
  Country: FR (occurrence: FR)
  Receive Date: 20220404
  Receipt Date: 20220404
  Transmission Date: 20220721
  Serious: Yes (Other)
  Sender: FDA-Public Use
  Company Number: None

PATIENT
  Age: 69 Year
  Sex: Female

DRUGS (15)
  1. OTEZLA [Suspect]
     Active Substance: APREMILAST
     Indication: Product used for unknown indication
     Dosage: 30 MG X 2 EVERY 2 DAYS
     Route: 048
     Dates: start: 20170227
  2. ALBUTEROL [Concomitant]
     Active Substance: ALBUTEROL
  3. METHOTREXATE [Concomitant]
     Active Substance: METHOTREXATE
  4. ACITRETIN [Concomitant]
     Active Substance: ACITRETIN
  5. TRULICITY [Concomitant]
     Active Substance: DULAGLUTIDE
  6. CLARITHROMYCIN [Concomitant]
     Active Substance: CLARITHROMYCIN
  7. PICATO [Concomitant]
     Active Substance: INGENOL MEBUTATE
  8. GLICLAZIDE [Concomitant]
     Active Substance: GLICLAZIDE
  9. METFORMIN HYDROCHLORIDE [Concomitant]
     Active Substance: METFORMIN HYDROCHLORIDE
  10. CRESTOR [Concomitant]
     Active Substance: ROSUVASTATIN CALCIUM
  11. DIPROSONE NEOMYCINE [Concomitant]
  12. DOLIPRANE [Concomitant]
     Active Substance: ACETAMINOPHEN
  13. CLOBEX [CLOBETASOL PROPIONATE] [Concomitant]
  14. ONGLYZA [SAXAGLIPTIN HYDROCHLORIDE] [Concomitant]
  15. COSENTYX [Concomitant]
     Active Substance: SECUKINUMAB

REACTIONS (1)
  - Squamous cell carcinoma [Recovered/Resolved]

NARRATIVE: CASE EVENT DATE: 20171213
